FAERS Safety Report 7002545-7 (Version None)
Quarter: 2010Q3

REPORT INFORMATION
  Report Type: 
  Country: None (occurrence: None)
  Receive Date: 20100920
  Receipt Date: 20100122
  Transmission Date: 20110219
  Serious: No
  Sender: FDA-Public Use
  Company Number: US-ASTRAZENECA-2010SE03230

PATIENT
  Age: 20191 Day
  Sex: Female
  Weight: 67.6 kg

DRUGS (4)
  1. SEROQUEL [Suspect]
     Route: 048
     Dates: start: 20100121, end: 20100121
  2. LEXAPRO [Concomitant]
     Route: 048
  3. CLONAZEPAM [Concomitant]
     Route: 048
  4. AMPHETAMINE AND DEXTROAMPHETAMINE SALTS [Concomitant]
     Route: 048

REACTIONS (4)
  - ASTHENIA [None]
  - DRUG DISPENSING ERROR [None]
  - FOOD CRAVING [None]
  - SOMNOLENCE [None]
